FAERS Safety Report 23238359 (Version 2)
Quarter: 2023Q4

REPORT INFORMATION
  Report Type: Spontaneous
  Country: JP (occurrence: JP)
  Receive Date: 20231129
  Receipt Date: 20231211
  Transmission Date: 20240110
  Serious: Yes (Death, Other)
  Sender: FDA-Public Use
  Company Number: JP-BRISTOL-MYERS SQUIBB COMPANY-2023-171436

PATIENT

DRUGS (2)
  1. YERVOY [Suspect]
     Active Substance: IPILIMUMAB
     Indication: Renal cell carcinoma
     Route: 041
  2. OPDIVO [Suspect]
     Active Substance: NIVOLUMAB
     Indication: Renal cell carcinoma

REACTIONS (14)
  - Death [Fatal]
  - Malignant neoplasm progression [Unknown]
  - Immune-mediated enterocolitis [Unknown]
  - Type 1 diabetes mellitus [Unknown]
  - Interstitial lung disease [Unknown]
  - Immune thrombocytopenia [Unknown]
  - Bell^s palsy [Unknown]
  - Polymyalgia rheumatica [Unknown]
  - Immune-mediated dermatitis [Unknown]
  - Diarrhoea [Unknown]
  - Hepatic function abnormal [Unknown]
  - Thyroid disorder [Unknown]
  - Gastrointestinal disorder [Unknown]
  - Hypopituitarism [Unknown]
